FAERS Safety Report 5398942-6 (Version None)
Quarter: 2007Q3

REPORT INFORMATION
  Report Type: 
  Country: None (occurrence: None)
  Receive Date: 20070724
  Receipt Date: 20070724
  Transmission Date: 20080115
  Serious: Yes (Hospitalization)
  Sender: FDA-Public Use
  Company Number: None

PATIENT
  Age: 53 Year
  Sex: Male

DRUGS (4)
  1. PACLITAXEL [Suspect]
     Indication: NON-SMALL CELL LUNG CANCER
     Dosage: 300MG IV DRIP
     Route: 041
     Dates: start: 20070510, end: 20070529
  2. BEVACIZUMAB [Concomitant]
  3. CETUXIMAB [Concomitant]
  4. CARBOPLATIN [Concomitant]

REACTIONS (4)
  - FATIGUE [None]
  - NEUROPATHY PERIPHERAL [None]
  - PALPITATIONS [None]
  - SUPRAVENTRICULAR TACHYCARDIA [None]
